FAERS Safety Report 8449769-X (Version None)
Quarter: 2012Q2

REPORT INFORMATION
  Report Type: 
  Country: None (occurrence: None)
  Receive Date: 20120614
  Receipt Date: 20120614
  Transmission Date: 20120825
  Serious: No
  Sender: FDA-Public Use
  Company Number: None

PATIENT
  Age: 37 Year
  Sex: Male

DRUGS (8)
  1. FUROSEMIDE [Concomitant]
  2. WARFARIN SODIUM [Concomitant]
  3. METOLAZONE [Concomitant]
  4. SPIRONOLACTONE [Concomitant]
  5. LETAIRIS [Suspect]
     Indication: PULMONARY HYPERTENSION
     Dosage: 5 MG DAILY PO
     Route: 048
     Dates: start: 20120301, end: 20120516
  6. EPOPROSTENOL [Concomitant]
  7. POTASSIUM ACETATE [Concomitant]
  8. ALBUTEROL [Concomitant]

REACTIONS (3)
  - WEIGHT INCREASED [None]
  - CARDIAC FAILURE [None]
  - CONDITION AGGRAVATED [None]
